FAERS Safety Report 6047179-6 (Version None)
Quarter: 2009Q1

REPORT INFORMATION
  Report Type: 
  Country: None (occurrence: None)
  Receive Date: 20090122
  Receipt Date: 20090108
  Transmission Date: 20090719
  Serious: Yes (Death)
  Sender: FDA-Public Use
  Company Number: US-GENENTECH-274162

PATIENT
  Sex: Male

DRUGS (8)
  1. BEVACIZUMAB [Suspect]
     Indication: COLON CANCER RECURRENT
     Dosage: 5 MG/KG, Q3W
     Route: 041
     Dates: start: 20071003, end: 20080730
  2. IRINOTECAN HCL [Suspect]
     Indication: COLON CANCER RECURRENT
     Dosage: 100 MG/M2, Q3W
     Route: 041
     Dates: start: 20071003, end: 20080730
  3. FLUOROURACIL [Suspect]
     Indication: COLON CANCER RECURRENT
     Dosage: 500 MG/M2, Q3W
     Route: 042
     Dates: start: 20071003, end: 20080801
  4. CALCIUM LEVOFOLINATE [Suspect]
     Indication: COLON CANCER RECURRENT
     Dosage: 250 MG/M2, Q3W
     Route: 041
     Dates: start: 20071003, end: 20080730
  5. BROTIZOLAM [Concomitant]
     Indication: DRUG USE FOR UNKNOWN INDICATION
     Dosage: UNK
     Dates: start: 20071003, end: 20080604
  6. KYTRIL [Concomitant]
     Indication: DRUG USE FOR UNKNOWN INDICATION
     Dosage: UNK
     Dates: start: 20071003, end: 20080604
  7. DECADRON [Concomitant]
     Indication: DRUG USE FOR UNKNOWN INDICATION
     Dosage: UNK
     Dates: start: 20071003, end: 20080604
  8. FENTANYL CITRATE [Concomitant]
     Indication: DRUG USE FOR UNKNOWN INDICATION

REACTIONS (2)
  - DEATH [None]
  - NEUTROPHIL COUNT DECREASED [None]
